FAERS Safety Report 23532878 (Version 2)
Quarter: 2024Q1

REPORT INFORMATION
  Report Type: Spontaneous
  Country: AU (occurrence: AU)
  Receive Date: 20240216
  Receipt Date: 20240305
  Transmission Date: 20240410
  Serious: Yes (Hospitalization)
  Sender: FDA-Public Use
  Company Number: AU-ELI_LILLY_AND_COMPANY-AU202402002411

PATIENT
  Age: 41 Year
  Sex: Female
  Weight: 131 kg

DRUGS (1)
  1. EMGALITY [Suspect]
     Active Substance: GALCANEZUMAB-GNLM
     Indication: Migraine
     Dosage: 120 MG, MONTHLY (1/M)
     Route: 058
     Dates: start: 20210928

REACTIONS (1)
  - Invasive breast carcinoma [Recovering/Resolving]

NARRATIVE: CASE EVENT DATE: 20221101
